FAERS Safety Report 9869956 (Version 1)
Quarter: 2014Q1

REPORT INFORMATION
  Report Type: Spontaneous
  Country: AT (occurrence: AT)
  Receive Date: 20140205
  Receipt Date: 20140205
  Transmission Date: 20141002
  Serious: Yes (Hospitalization)
  Sender: FDA-Public Use
  Company Number: AT-ASTRAZENECA-2014SE05772

PATIENT
  Age: 35 Year
  Sex: Male

DRUGS (1)
  1. LIDOCAINE WITH EPINEPHRINE [Suspect]
     Indication: LOCAL ANAESTHESIA
     Dosage: 3-4 TIMES
     Route: 053

REACTIONS (1)
  - Abscess soft tissue [Recovered/Resolved]
